FAERS Safety Report 20095877 (Version 1)
Quarter: 2021Q4

REPORT INFORMATION
  Report Type: Spontaneous
  Country: US (occurrence: None)
  Receive Date: 20211119
  Receipt Date: 20211119
  Transmission Date: 20220303
  Serious: Yes (Hospitalization)
  Sender: FDA-Public Use
  Company Number: None

PATIENT
  Age: 66 Year
  Sex: Female

DRUGS (6)
  1. COPAXONE [Suspect]
     Active Substance: GLATIRAMER ACETATE
     Indication: Multiple sclerosis
     Dosage: FREQUENCY : 3 TIMES A WEEK;?
     Route: 058
     Dates: start: 20210414
  2. FISH OIL [Concomitant]
     Active Substance: FISH OIL
  3. GLUCOSAMINE [Concomitant]
     Active Substance: GLUCOSAMINE
  4. VITAMIN C [Concomitant]
     Active Substance: ASCORBIC ACID
  5. VITAMIN D [Concomitant]
     Active Substance: VITAMIN D NOS
  6. VITAMIN E [Concomitant]
     Active Substance: .ALPHA.-TOCOPHEROL

REACTIONS (5)
  - Product substitution issue [None]
  - Injection site induration [None]
  - Dysarthria [None]
  - Multiple sclerosis [None]
  - Urinary tract infection [None]

NARRATIVE: CASE EVENT DATE: 20211101
